FAERS Safety Report 21450959 (Version 9)
Quarter: 2024Q1

REPORT INFORMATION
  Report Type: Report from Study
  Country: US (occurrence: US)
  Receive Date: 20221013
  Receipt Date: 20240312
  Transmission Date: 20240409
  Serious: Yes (Other)
  Sender: FDA-Public Use
  Company Number: US-ABBVIE-4147793

PATIENT
  Age: 80 Year
  Sex: Male
  Weight: 53.977 kg

DRUGS (5)
  1. IMBRUVICA [Suspect]
     Active Substance: IBRUTINIB
     Indication: Waldenstrom^s macroglobulinaemia
     Dosage: FORM STRENGTH: 420 MG
     Route: 048
     Dates: start: 20200131
  2. IMBRUVICA [Suspect]
     Active Substance: IBRUTINIB
     Indication: Waldenstrom^s macroglobulinaemia
     Dosage: FORM STRENGTH: 420 MG
     Route: 048
     Dates: start: 20200101, end: 202001
  3. OCTAGAM IMMUNE GLOBULIN (HUMAN) [Suspect]
     Active Substance: HUMAN IMMUNOGLOBULIN G
     Indication: Neuropathy peripheral
     Route: 065
  4. PFIZER-BIONTECH COVID-19 VACCINE [Concomitant]
     Active Substance: TOZINAMERAN
     Indication: COVID-19 immunisation
     Dosage: TIME INTERVAL: TOTAL: FIRST DOSE
     Route: 030
     Dates: start: 20210211, end: 20210211
  5. PFIZER-BIONTECH COVID-19 VACCINE [Concomitant]
     Active Substance: TOZINAMERAN
     Indication: COVID-19 immunisation
     Dosage: TIME INTERVAL: TOTAL: SECOND DOSE
     Route: 030
     Dates: start: 20210316, end: 20210316

REACTIONS (10)
  - Leukaemia [Unknown]
  - Globulins increased [Unknown]
  - Blood pressure increased [Recovered/Resolved]
  - Therapeutic product effect decreased [Unknown]
  - Regurgitation [Unknown]
  - Bedridden [Unknown]
  - Tremor [Unknown]
  - Dyspepsia [Not Recovered/Not Resolved]
  - Globulins decreased [Unknown]
  - Neuropathy peripheral [Unknown]

NARRATIVE: CASE EVENT DATE: 20200101
